FAERS Safety Report 20136504 (Version 1)
Quarter: 2021Q4

REPORT INFORMATION
  Report Type: Spontaneous
  Country: US (occurrence: None)
  Receive Date: 20211201
  Receipt Date: 20211201
  Transmission Date: 20220303
  Serious: Yes (Other)
  Sender: FDA-Public Use
  Company Number: None

PATIENT
  Age: 62 Year
  Sex: Female
  Weight: 55.8 kg

DRUGS (1)
  1. ZOLEDRONIC ACID [Suspect]
     Active Substance: ZOLEDRONIC ACID
     Indication: Osteoporosis
     Dosage: FREQUENCY : ONCE;?
     Route: 041

REACTIONS (9)
  - Chills [None]
  - Headache [None]
  - Chills [None]
  - Asthenia [None]
  - Myalgia [None]
  - Bone pain [None]
  - Pyrexia [None]
  - Fatigue [None]
  - Delirium [None]

NARRATIVE: CASE EVENT DATE: 20211129
